FAERS Safety Report 11496241 (Version 9)
Quarter: 2018Q2

REPORT INFORMATION
  Report Type: Report from Study
  Country: US (occurrence: US)
  Receive Date: 20150911
  Receipt Date: 20180530
  Transmission Date: 20180711
  Serious: Yes (Hospitalization)
  Sender: FDA-Public Use
  Company Number: US-ACTELION-A-NJ2015-123664

PATIENT
  Age: 68 Year
  Sex: Male
  Weight: 68.48 kg

DRUGS (4)
  1. VELETRI [Suspect]
     Active Substance: EPOPROSTENOL
     Dosage: 7 NG/KG, PER MIN
     Route: 042
  2. ADEMPAS [Concomitant]
     Active Substance: RIOCIGUAT
  3. XARELTO [Concomitant]
     Active Substance: RIVAROXABAN
  4. VELETRI [Suspect]
     Active Substance: EPOPROSTENOL
     Indication: PULMONARY ARTERIAL HYPERTENSION
     Dosage: 30 NG/KG, PER MIN
     Route: 042
     Dates: start: 20120328

REACTIONS (17)
  - Seasonal allergy [Unknown]
  - Rhinorrhoea [Unknown]
  - Acute kidney injury [Unknown]
  - Pulmonary hypertension [Unknown]
  - Pain in jaw [Unknown]
  - Flushing [Unknown]
  - Herpes zoster [Unknown]
  - Dehydration [Unknown]
  - Headache [Unknown]
  - Asthenia [Unknown]
  - Sinusitis [Unknown]
  - Pancreatitis [Unknown]
  - Lacrimation increased [Unknown]
  - Cyst [Unknown]
  - Chest pain [Unknown]
  - Dyspnoea exertional [Unknown]
  - Multiple allergies [Unknown]
